FAERS Safety Report 8326797-6 (Version None)
Quarter: 2012Q2

REPORT INFORMATION
  Report Type: 
  Country: None (occurrence: None)
  Receive Date: 20120501
  Receipt Date: 20120427
  Transmission Date: 20120825
  Serious: Yes (Hospitalization, Other)
  Sender: FDA-Public Use
  Company Number: FR-PFIZER INC-2012095849

PATIENT
  Age: 59 Year
  Sex: Male

DRUGS (10)
  1. ATORVASTATIN [Suspect]
     Dosage: 40 MG, 1X/DAY
     Route: 048
     Dates: end: 20120214
  2. GLICLAZIDE [Suspect]
     Dosage: 1 DF, 3X/DAY
     Route: 048
     Dates: end: 20120214
  3. BISOPROLOL [Concomitant]
     Dosage: UNK
  4. IKOREL [Concomitant]
     Dosage: UNK
  5. PLAVIX [Concomitant]
     Dosage: UNK
  6. LIRAGLUTIDE (NN2211) [Suspect]
     Dosage: 6 MG/ML, 0.6 MG 1X/DAY
     Route: 058
     Dates: start: 20110801, end: 20120214
  7. RAMIPRIL [Suspect]
     Dosage: 10 MG, 1X/DAY
     Route: 048
     Dates: end: 20120214
  8. METFORMIN [Concomitant]
     Dosage: UNK
     Dates: end: 20120214
  9. ASPIRIN [Concomitant]
     Dosage: UNK
  10. UMULINE [Concomitant]
     Dosage: UNK

REACTIONS (5)
  - NAUSEA [None]
  - HYPERTRIGLYCERIDAEMIA [None]
  - PANCREATITIS ACUTE [None]
  - ABDOMINAL PAIN UPPER [None]
  - VOMITING [None]
